FAERS Safety Report 5694354-6 (Version None)
Quarter: 2008Q2

REPORT INFORMATION
  Report Type: 
  Country: None (occurrence: None)
  Receive Date: 20080404
  Receipt Date: 20080307
  Transmission Date: 20081010
  Serious: Yes (Death)
  Sender: FDA-Public Use
  Company Number: IL-BAYER-200815714GPV

PATIENT

DRUGS (3)
  1. FLUDARABINE [Suspect]
     Indication: STEM CELL TRANSPLANT
     Route: 042
  2. BUSULFAN [Suspect]
     Indication: STEM CELL TRANSPLANT
     Route: 042
  3. MELPHALAN [Suspect]
     Indication: STEM CELL TRANSPLANT
     Route: 042

REACTIONS (3)
  - DRUG TOXICITY [None]
  - GRAFT VERSUS HOST DISEASE [None]
  - INFECTION [None]
